FAERS Safety Report 9536573 (Version 1)
Quarter: 2013Q2

REPORT INFORMATION
  Report Type: Spontaneous
  Country: US (occurrence: None)
  Receive Date: 20130507
  Receipt Date: 20130507
  Transmission Date: 20140414
  Serious: No
  Sender: FDA-Public Use
  Company Number: PHEH2012US009387

PATIENT
  Age: 14 Year
  Sex: Female

DRUGS (3)
  1. AFINITOR (RAD) [Suspect]
     Indication: TUBEROUS SCLEROSIS
     Route: 048
     Dates: start: 20110903
  2. RAPAMUNE (SIROLIMUS) [Concomitant]
  3. AMITRIPTYLINE (AMITRIPTYLINE) [Concomitant]

REACTIONS (2)
  - Ovarian cyst [None]
  - Headache [None]
